FAERS Safety Report 21041264 (Version 2)
Quarter: 2022Q3

REPORT INFORMATION
  Report Type: Spontaneous
  Country: US (occurrence: US)
  Receive Date: 20220705
  Receipt Date: 20220731
  Transmission Date: 20221026
  Serious: No
  Sender: FDA-Public Use
  Company Number: US-PCCINC-2022-PEL-000331

PATIENT

DRUGS (1)
  1. GABLOFEN [Suspect]
     Active Substance: BACLOFEN
     Indication: Muscle spasticity
     Dosage: 290.4 MICROGRAM
     Route: 037

REACTIONS (4)
  - Withdrawal syndrome [Unknown]
  - Muscle tightness [Unknown]
  - Muscle spasms [Unknown]
  - Pruritus [Unknown]
